FAERS Safety Report 21702889 (Version 2)
Quarter: 2022Q4

REPORT INFORMATION
  Report Type: Spontaneous
  Country: US (occurrence: US)
  Receive Date: 20221209
  Receipt Date: 20221213
  Transmission Date: 20230112
  Serious: No
  Sender: FDA-Public Use
  Company Number: US-BRISTOL-MYERS SQUIBB COMPANY-2022-150599

PATIENT
  Age: 84 Year
  Sex: Male

DRUGS (1)
  1. IDHIFA [Suspect]
     Active Substance: ENASIDENIB MESYLATE
     Indication: Acute myeloid leukaemia
     Route: 048
     Dates: start: 20221116

REACTIONS (6)
  - Asthenia [Unknown]
  - Blood potassium decreased [Unknown]
  - Pain [Unknown]
  - Fall [Recovered/Resolved]
  - Head injury [Unknown]
  - Polyuria [Unknown]

NARRATIVE: CASE EVENT DATE: 20221101
